FAERS Safety Report 9782527 (Version 2)
Quarter: 2014Q2

REPORT INFORMATION
  Report Type: Report from Study
  Country: DE (occurrence: DE)
  Receive Date: 20131226
  Receipt Date: 20140521
  Transmission Date: 20141212
  Serious: Yes (Other)
  Sender: FDA-Public Use
  Company Number: PHHY2013DE151187

PATIENT
  Sex: Female

DRUGS (5)
  1. FTY 720 [Suspect]
     Indication: MULTIPLE SCLEROSIS
     Dosage: 0.5 MG, QD
     Route: 048
     Dates: start: 20120125
  2. CITALOPRAM [Concomitant]
     Dosage: 20 MG, QD
  3. RAMIPRIL [Concomitant]
     Dosage: 5/12 MG, QD
  4. THYROID HORMONES [Concomitant]
  5. BISOHEXAL [Concomitant]
     Dates: end: 20130227

REACTIONS (1)
  - Microcytic anaemia [Recovered/Resolved]
